FAERS Safety Report 4716731-X (Version None)
Quarter: 2005Q3

REPORT INFORMATION
  Report Type: 
  Country: None (occurrence: None)
  Receive Date: 20050714
  Receipt Date: 20050708
  Transmission Date: 20060218
  Serious: No
  Sender: FDA-Public Use
  Company Number: 2005-130153-NL

PATIENT
  Age: 58 Year
  Sex: Male

DRUGS (2)
  1. MIRTAZAPINE [Suspect]
     Indication: DEPRESSION
     Dosage: 30 MG
     Dates: start: 20040410
  2. HYDROXYZINE HCL [Concomitant]

REACTIONS (1)
  - VENTRICULAR TACHYCARDIA [None]
